FAERS Safety Report 4564148-3 (Version None)
Quarter: 2005Q1

REPORT INFORMATION
  Report Type: 
  Country: None (occurrence: None)
  Receive Date: 20050128
  Receipt Date: 20050106
  Transmission Date: 20050727
  Serious: Yes (Hospitalization)
  Sender: FDA-Public Use
  Company Number: AU-MERCK-0501AUS00162

PATIENT
  Age: 61 Year
  Sex: Female

DRUGS (4)
  1. VIOXX [Suspect]
     Route: 048
     Dates: start: 20010101, end: 20030101
  2. VIOXX [Suspect]
     Route: 048
  3. [THERAPY UNSPECIFIED] [Concomitant]
     Indication: HYPERTENSION
     Route: 065
  4. HYDROCHLOROTHIAZIDE AND IRBESARTAN [Concomitant]
     Route: 065

REACTIONS (2)
  - MEDICATION ERROR [None]
  - MYOCARDIAL INFARCTION [None]
